FAERS Safety Report 15556654 (Version 4)
Quarter: 2018Q4

REPORT INFORMATION
  Report Type: Spontaneous
  Country: RO (occurrence: RO)
  Receive Date: 20181026
  Receipt Date: 20181221
  Transmission Date: 20190205
  Serious: Yes (Hospitalization, Other)
  Sender: FDA-Public Use
  Company Number: RO-ASTRAZENECA-2018SF35672

PATIENT
  Age: 80 Year

DRUGS (37)
  1. ROSUVASTATIN. [Suspect]
     Active Substance: ROSUVASTATIN
     Indication: PRESYNCOPE
     Route: 065
     Dates: start: 2016
  2. ROSUVASTATIN. [Suspect]
     Active Substance: ROSUVASTATIN
     Indication: BLOOD PRESSURE SYSTOLIC
     Route: 065
     Dates: start: 2016
  3. ROSUVASTATIN. [Suspect]
     Active Substance: ROSUVASTATIN
     Indication: SYNCOPE
     Route: 065
  4. ROSUVASTATIN. [Suspect]
     Active Substance: ROSUVASTATIN
     Indication: DIZZINESS
     Route: 065
  5. RIVAROXABAN [Suspect]
     Active Substance: RIVAROXABAN
     Indication: MESENTERIC ARTERY THROMBOSIS
     Route: 065
     Dates: start: 2016
  6. ROSUVASTATIN. [Suspect]
     Active Substance: ROSUVASTATIN
     Indication: HYPERTENSION
     Route: 065
     Dates: start: 2016
  7. RASAGILINE. [Suspect]
     Active Substance: RASAGILINE
     Indication: HYPERTENSION
     Route: 048
     Dates: start: 2017
  8. CLOPIDOGREL [Suspect]
     Active Substance: CLOPIDOGREL BISULFATE
     Indication: CEREBROVASCULAR DISORDER
     Route: 005
     Dates: start: 2016
  9. CANDESARTAN CILEXETIL. [Suspect]
     Active Substance: CANDESARTAN CILEXETIL
     Indication: HYPERTENSION
     Route: 065
     Dates: start: 2012
  10. RAMIPRIL. [Suspect]
     Active Substance: RAMIPRIL
     Indication: ACUTE CORONARY SYNDROME
     Route: 065
     Dates: start: 2016
  11. ROSUVASTATIN. [Suspect]
     Active Substance: ROSUVASTATIN
     Indication: CORONARY ARTERY DISEASE
     Route: 065
     Dates: start: 2016
  12. ROSUVASTATIN. [Suspect]
     Active Substance: ROSUVASTATIN
     Indication: ACUTE CORONARY SYNDROME
     Route: 065
  13. BISOPROLOL [Suspect]
     Active Substance: BISOPROLOL
     Indication: HYPERTENSION
     Route: 065
     Dates: start: 2016
  14. CARBIDOPA. [Suspect]
     Active Substance: CARBIDOPA
     Indication: PARKINSON^S DISEASE
     Route: 005
     Dates: start: 2017
  15. ROSUVASTATIN. [Suspect]
     Active Substance: ROSUVASTATIN
     Indication: ACUTE CORONARY SYNDROME
     Route: 065
     Dates: start: 2016
  16. LERCANIDIPINE [Suspect]
     Active Substance: LERCANIDIPINE
     Indication: HYPERTENSION
     Route: 065
  17. ROSUVASTATIN. [Suspect]
     Active Substance: ROSUVASTATIN
     Indication: SYNCOPE
     Route: 065
     Dates: start: 2016
  18. ROSUVASTATIN. [Suspect]
     Active Substance: ROSUVASTATIN
     Indication: BLOOD PRESSURE SYSTOLIC
     Route: 065
  19. LERCANIDIPINE [Suspect]
     Active Substance: LERCANIDIPINE
     Indication: HYPERTENSION
     Route: 065
     Dates: start: 2012
  20. OMEPRAZOLE. [Concomitant]
     Active Substance: OMEPRAZOLE
     Indication: INTERMITTENT CLAUDICATION
     Route: 005
  21. OMEPRAZOLE. [Concomitant]
     Active Substance: OMEPRAZOLE
     Indication: DIZZINESS
     Route: 005
  22. RIVAROXABAN [Suspect]
     Active Substance: RIVAROXABAN
     Indication: ANTICOAGULANT THERAPY
     Route: 065
     Dates: start: 2016
  23. CLOPIDOGREL [Suspect]
     Active Substance: CLOPIDOGREL BISULFATE
     Indication: ACUTE CORONARY SYNDROME
     Route: 005
     Dates: start: 2016
  24. LEVODOPA [Suspect]
     Active Substance: LEVODOPA
     Indication: PARKINSON^S DISEASE
     Route: 065
  25. OMEPRAZOLE. [Concomitant]
     Active Substance: OMEPRAZOLE
     Indication: BLOOD PRESSURE SYSTOLIC
     Route: 005
  26. ROSUVASTATIN. [Suspect]
     Active Substance: ROSUVASTATIN
     Indication: INTERMITTENT CLAUDICATION
     Route: 065
     Dates: start: 2016
  27. ROSUVASTATIN. [Suspect]
     Active Substance: ROSUVASTATIN
     Indication: DIZZINESS
     Route: 065
     Dates: start: 2016
  28. BISOPROLOL [Suspect]
     Active Substance: BISOPROLOL
     Indication: ACUTE CORONARY SYNDROME
     Route: 065
     Dates: start: 2016
  29. OMEPRAZOLE. [Concomitant]
     Active Substance: OMEPRAZOLE
     Indication: PRODUCT USED FOR UNKNOWN INDICATION
     Route: 005
  30. RAMIPRIL. [Suspect]
     Active Substance: RAMIPRIL
     Indication: CORONARY ARTERY DISEASE
     Route: 065
     Dates: start: 2016
  31. ROSUVASTATIN. [Suspect]
     Active Substance: ROSUVASTATIN
     Indication: HYPERTENSION
     Route: 065
  32. ROSUVASTATIN. [Suspect]
     Active Substance: ROSUVASTATIN
     Indication: INTERMITTENT CLAUDICATION
     Route: 065
  33. ROSUVASTATIN. [Suspect]
     Active Substance: ROSUVASTATIN
     Indication: CORONARY ARTERY DISEASE
     Route: 065
  34. ROSUVASTATIN. [Suspect]
     Active Substance: ROSUVASTATIN
     Indication: PRESYNCOPE
     Route: 065
  35. AMIODARONE [Suspect]
     Active Substance: AMIODARONE
     Indication: PRODUCT USED FOR UNKNOWN INDICATION
     Dosage: UNKNOWN
     Route: 065
  36. OMEPRAZOLE. [Concomitant]
     Active Substance: OMEPRAZOLE
     Indication: SYNCOPE
     Route: 005
  37. OMEPRAZOLE. [Concomitant]
     Active Substance: OMEPRAZOLE
     Indication: PRESYNCOPE
     Route: 005

REACTIONS (7)
  - Orthostatic hypertension [Recovered/Resolved]
  - Dizziness [Recovered/Resolved]
  - Presyncope [Recovered/Resolved]
  - Supine hypertension [Recovering/Resolving]
  - Orthostatic hypotension [Recovered/Resolved]
  - Syncope [Recovered/Resolved with Sequelae]
  - Intermittent claudication [Unknown]

NARRATIVE: CASE EVENT DATE: 2017
